FAERS Safety Report 20633576 (Version 9)
Quarter: 2022Q2

REPORT INFORMATION
  Report Type: Spontaneous
  Country: US (occurrence: US)
  Receive Date: 20220324
  Receipt Date: 20220516
  Transmission Date: 20220721
  Serious: Yes (Hospitalization)
  Sender: FDA-Public Use
  Company Number: US-ELI_LILLY_AND_COMPANY-US202203006064

PATIENT
  Age: 20 Year
  Sex: Female

DRUGS (11)
  1. ADCIRCA [Suspect]
     Active Substance: TADALAFIL
     Indication: Pulmonary hypertension
     Dosage: 40 MG, DAILY
     Route: 065
     Dates: start: 202107
  2. AMBRISENTAN [Suspect]
     Active Substance: AMBRISENTAN
     Indication: Pulmonary hypertension
     Dosage: UNK UNK, UNKNOWN (10)
     Route: 065
     Dates: start: 20190216
  3. AMBRISENTAN [Suspect]
     Active Substance: AMBRISENTAN
     Dosage: UNK UNK, UNKNOWN (10)
     Route: 065
     Dates: start: 20200727
  4. AMBRISENTAN [Suspect]
     Active Substance: AMBRISENTAN
     Dosage: UNK UNK, UNKNOWN (10)
     Route: 065
     Dates: start: 20190219
  5. AMBRISENTAN [Suspect]
     Active Substance: AMBRISENTAN
     Dosage: UNK UNK, UNKNOWN (10)
     Route: 065
     Dates: start: 202107
  6. AMBRISENTAN [Suspect]
     Active Substance: AMBRISENTAN
     Dosage: 10 MG, DAILY
     Route: 065
     Dates: start: 201902
  7. AMBRISENTAN [Suspect]
     Active Substance: AMBRISENTAN
     Dosage: 10 MG, DAILY
     Route: 065
     Dates: start: 20190219
  8. VELETRI [Suspect]
     Active Substance: EPOPROSTENOL
     Indication: Pulmonary hypertension
     Dosage: 35 NG, OTHER (Q1MINUTE)
     Route: 065
     Dates: start: 20210302, end: 20220315
  9. REMODULIN [Suspect]
     Active Substance: TREPROSTINIL
     Indication: Pulmonary hypertension
     Dosage: 35 NG, OTHER, Q1 MINUTE
     Route: 065
     Dates: start: 202203
  10. REMODULIN [Suspect]
     Active Substance: TREPROSTINIL
     Dosage: 53.6 NG, OTHER, Q1 MINUTE
     Route: 058
     Dates: start: 20220318
  11. REMODULIN [Suspect]
     Active Substance: TREPROSTINIL
     Dosage: 54 MG, OTHER (Q1MINUTE)
     Route: 042
     Dates: start: 20220316

REACTIONS (12)
  - Complication associated with device [Unknown]
  - Dyspnoea [Unknown]
  - Vaginal haemorrhage [Unknown]
  - Diarrhoea [Unknown]
  - Fluid retention [Unknown]
  - Oedema [Unknown]
  - Pain [Unknown]
  - Swelling [Unknown]
  - Headache [Unknown]
  - Myalgia [Unknown]
  - Pain in extremity [Unknown]
  - Dyspnoea [Unknown]

NARRATIVE: CASE EVENT DATE: 20220311
